FAERS Safety Report 15027837 (Version 2)
Quarter: 2018Q2

REPORT INFORMATION
  Report Type: Spontaneous
  Country: US (occurrence: US)
  Receive Date: 20180619
  Receipt Date: 20180622
  Transmission Date: 20180711
  Serious: No
  Sender: FDA-Public Use
  Company Number: US-PFIZER INC-2018246728

PATIENT
  Age: 69 Year
  Sex: Female

DRUGS (1)
  1. EXEMESTANE. [Suspect]
     Active Substance: EXEMESTANE
     Dosage: 25 MG, UNK

REACTIONS (5)
  - Tremor [Unknown]
  - Insomnia [Unknown]
  - Pain in extremity [Unknown]
  - Feeling abnormal [Unknown]
  - Dizziness [Unknown]
